FAERS Safety Report 21180226 (Version 3)
Quarter: 2022Q3

REPORT INFORMATION
  Report Type: Spontaneous
  Country: RO (occurrence: RO)
  Receive Date: 20220806
  Receipt Date: 20220825
  Transmission Date: 20221026
  Serious: Yes (Hospitalization, Other)
  Sender: FDA-Public Use
  Company Number: RO-MEDO2008-L202207050

PATIENT
  Age: 12 Year
  Sex: Female

DRUGS (4)
  1. PANTOPRAZOLE [Suspect]
     Active Substance: PANTOPRAZOLE
     Indication: Product used for unknown indication
     Route: 042
  2. ESOMEPRAZOLE [Suspect]
     Active Substance: ESOMEPRAZOLE
     Indication: Oesophagitis
  3. CEFTRIAXONE [Suspect]
     Active Substance: CEFTRIAXONE
     Indication: Antibiotic prophylaxis
  4. OCTREOTIDE [Concomitant]
     Active Substance: OCTREOTIDE
     Indication: Anaemia
     Dosage: 2 MCG/KG FOLLOWED BY 2 ?G/KG/H UNTIL HAEMOSTASIS WAS OBTAINED, THEN THE DOSE WAS REDUCED TO 50 PERCE
     Route: 042

REACTIONS (1)
  - Cholelithiasis [Unknown]
